FAERS Safety Report 21647801 (Version 2)
Quarter: 2022Q4

REPORT INFORMATION
  Report Type: Spontaneous
  Country: US (occurrence: US)
  Receive Date: 20221128
  Receipt Date: 20221228
  Transmission Date: 20230113
  Serious: Yes (Death, Other)
  Sender: FDA-Public Use
  Company Number: US-AUROBINDO-AUR-APL-2022-050113

PATIENT
  Age: 68 Year
  Sex: Male

DRUGS (5)
  1. MIDODRINE HYDROCHLORIDE [Suspect]
     Active Substance: MIDODRINE HYDROCHLORIDE
     Indication: Hypotension
     Dosage: 20 MILLIGRAM, 3 TIMES A DAY
     Route: 065
  2. VASOPRESSIN [Suspect]
     Active Substance: VASOPRESSIN
     Indication: Hypotension
     Dosage: 20 MILLIGRAM, 3 TIMES A DAY(ON POSTOPERATIVE (POD) DAY 12)
     Route: 065
  3. VASOPRESSIN [Suspect]
     Active Substance: VASOPRESSIN
     Dosage: 0.04 UNITS/MIN
     Route: 065
  4. NOREPINEPHRINE [Suspect]
     Active Substance: NOREPINEPHRINE
     Indication: Hypotension
     Dosage: RANGED FROM 0.04 TO 0.09 MCG/KG/MIN
     Route: 065
  5. NOREPINEPHRINE [Suspect]
     Active Substance: NOREPINEPHRINE
     Dosage: 0.06 MICROGRAM/KILOGRAM PER MINUTE
     Route: 065

REACTIONS (1)
  - Intestinal ischaemia [Fatal]
